FAERS Safety Report 8599863 (Version 2)
Quarter: 2014Q1

REPORT INFORMATION
  Report Type: Spontaneous
  Country: US (occurrence: None)
  Receive Date: 20120323
  Receipt Date: 20130305
  Transmission Date: 20141002
  Serious: Yes (Other)
  Sender: FDA-Public Use
  Company Number: 163-21880-11112870

PATIENT
  Age: 88 Year
  Sex: Female

DRUGS (6)
  1. REVLIMID [Suspect]
     Indication: PLASMA CELL MYELOMA
     Dosage: 15 MG, DAILY FOR 21 DAYS, PO
     Route: 048
     Dates: start: 201103, end: 20111228
  2. GABAPENTIN [Concomitant]
  3. ASA (ACETYLSALICYLIC ACID) [Concomitant]
  4. REMERON (MIRTAZAPINE) [Concomitant]
  5. TREMADOL (TRAMADOL HYDROCHLORIDE) [Concomitant]
  6. DEXAMETHASONE [Concomitant]

REACTIONS (5)
  - Thrombosis [None]
  - Red blood cell count decreased [None]
  - Drug dose omission [None]
  - Deep vein thrombosis [None]
  - Pulmonary embolism [None]
